FAERS Safety Report 4599476-9 (Version None)
Quarter: 2005Q1

REPORT INFORMATION
  Report Type: 
  Country: None (occurrence: None)
  Receive Date: 20050303
  Receipt Date: 20050223
  Transmission Date: 20050727
  Serious: Yes (Hospitalization)
  Sender: FDA-Public Use
  Company Number: 05-NIP00009

PATIENT
  Age: 78 Year
  Sex: Female

DRUGS (17)
  1. NIPENT [Suspect]
     Indication: NON-HODGKIN'S LYMPHOMA
     Dosage: 0.1429 MG/M2 (3 MG/M2, Q21 DAYS), INTRAVENOUS
     Route: 042
     Dates: start: 20041207
  2. RITUXAN [Suspect]
     Dosage: 17.8571 MG/M2 (375 MG/M2, Q21 DAYS), INTRAVENOUS
     Route: 042
     Dates: start: 20041214
  3. CYTOXAN [Suspect]
     Dosage: 28.5714 MG/M2 (600 MG/M2, Q21DAYS), INTRAVENOUS
     Route: 042
     Dates: start: 20041207
  4. SIMVASTATIN [Concomitant]
  5. LEVOTHYROXINE SODIUM [Concomitant]
  6. DEPO ESTRADI [Concomitant]
  7. LANSOPRAZOLE [Concomitant]
  8. FLUOXETINE [Concomitant]
  9. ATENOLOL [Concomitant]
  10. ALLOPURINOL [Concomitant]
  11. SULFAMETHOXAZOLE [Concomitant]
  12. ACYCLOVIR [Concomitant]
  13. CLOPIDOGREL [Concomitant]
  14. PANTOPRAZOLE [Concomitant]
  15. PIPERACILLIN SODIUM [Concomitant]
  16. DROPERIDOL [Concomitant]
  17. DIPHENOXYLATE [Concomitant]

REACTIONS (3)
  - FEBRILE NEUTROPENIA [None]
  - HYDRONEPHROSIS [None]
  - UROSEPSIS [None]
